FAERS Safety Report 11653518 (Version 4)
Quarter: 2015Q4

REPORT INFORMATION
  Report Type: Spontaneous
  Country: JP (occurrence: JP)
  Receive Date: 20151022
  Receipt Date: 20151130
  Transmission Date: 20160304
  Serious: Yes (Other)
  Sender: FDA-Public Use
  Company Number: JP-PFIZER INC-2015352419

PATIENT
  Age: 80 Year
  Sex: Male
  Weight: 63 kg

DRUGS (18)
  1. LYRICA [Suspect]
     Active Substance: PREGABALIN
     Dosage: 75 MG, 2X/DAY
     Route: 048
     Dates: start: 20150606, end: 20150609
  2. ONETRAM [Suspect]
     Active Substance: TRAMADOL HYDROCHLORIDE
     Indication: NEURALGIA
     Dosage: 100 MG, 1X/DAY
     Route: 048
     Dates: start: 20150824, end: 20151001
  3. LYRICA [Suspect]
     Active Substance: PREGABALIN
     Indication: NEURALGIA
     Dosage: 25 MG, 1X/DAY
     Route: 048
     Dates: start: 20150601, end: 20150603
  4. TRAMAL [Suspect]
     Active Substance: TRAMADOL
     Dosage: 25 MG, 3X/DAY
     Route: 048
     Dates: start: 20150707, end: 20150727
  5. TRAMAL [Suspect]
     Active Substance: TRAMADOL
     Dosage: 25 MG, 4X/DAY
     Route: 048
     Dates: start: 20150728, end: 20150809
  6. LYRICA [Suspect]
     Active Substance: PREGABALIN
     Dosage: 25 MG, 2X/DAY
     Route: 048
     Dates: start: 20150604, end: 20150605
  7. LYRICA [Suspect]
     Active Substance: PREGABALIN
     Dosage: 100 MG, 2X/DAY
     Route: 048
     Dates: start: 20150626, end: 20150629
  8. LYRICA [Suspect]
     Active Substance: PREGABALIN
     Dosage: 75 MG, 1X/DAY
     Route: 048
     Dates: start: 20150914, end: 20150927
  9. TRAMAL [Suspect]
     Active Substance: TRAMADOL
     Indication: NEURALGIA
     Dosage: 25 MG, 1X/DAY
     Route: 048
     Dates: start: 20150618, end: 20150622
  10. LYRICA [Suspect]
     Active Substance: PREGABALIN
     Dosage: 100 MG, 2X/DAY
     Route: 048
     Dates: start: 20150610, end: 20150616
  11. TRAMAL [Suspect]
     Active Substance: TRAMADOL
     Dosage: 25 MG, 2X/DAY
     Route: 048
     Dates: start: 20150623, end: 20150625
  12. TRAMAL [Suspect]
     Active Substance: TRAMADOL
     Dosage: 25 MG, 1X/DAY
     Route: 048
     Dates: start: 20150914, end: 20150927
  13. TRAMAL [Suspect]
     Active Substance: TRAMADOL
     Dosage: 25 MG, 2X/DAY
     Route: 048
     Dates: start: 20150928, end: 20151001
  14. LYRICA [Suspect]
     Active Substance: PREGABALIN
     Dosage: 150 MG, 2X/DAY
     Route: 048
     Dates: start: 20150617, end: 20150625
  15. LYRICA [Suspect]
     Active Substance: PREGABALIN
     Dosage: 75 MG, 2X/DAY
     Route: 048
     Dates: start: 20150630, end: 20150913
  16. TRAMAL [Suspect]
     Active Substance: TRAMADOL
     Dosage: 25 MG, 3X/DAY
     Route: 048
     Dates: start: 20150810, end: 20150823
  17. TRAMAL [Suspect]
     Active Substance: TRAMADOL
     Dosage: 25 MG, 3X/DAY
     Route: 048
     Dates: start: 20150626, end: 20150629
  18. TRAMAL [Suspect]
     Active Substance: TRAMADOL
     Dosage: 25 MG, 4X/DAY
     Route: 048
     Dates: start: 20150630, end: 20150706

REACTIONS (6)
  - Respiratory depression [Recovered/Resolved]
  - Decreased appetite [Unknown]
  - Arrhythmia [Unknown]
  - Erythema [Unknown]
  - Pruritus [Unknown]
  - Dysphonia [Recovering/Resolving]

NARRATIVE: CASE EVENT DATE: 2015
